FAERS Safety Report 10085591 (Version 4)
Quarter: 2014Q2

REPORT INFORMATION
  Report Type: Report from Study
  Country: CA (occurrence: CA)
  Receive Date: 20140418
  Receipt Date: 20140606
  Transmission Date: 20141212
  Serious: Yes (Hospitalization, Other)
  Sender: FDA-Public Use
  Company Number: CA-UCBSA-106481

PATIENT
  Age: 38 Year
  Sex: Female
  Weight: 57 kg

DRUGS (2)
  1. CERTOLIZUMAB PEGOL RA [Suspect]
     Indication: RHEUMATOID ARTHRITIS
     Dosage: 400 MG, EV 2 WEEKS(QOW)
     Route: 058
     Dates: start: 20130715, end: 20130812
  2. CERTOLIZUMAB PEGOL RA [Suspect]
     Dosage: 400 MG, EV 4 WEEKS
     Route: 058
     Dates: start: 20130909, end: 2014

REACTIONS (2)
  - Abortion spontaneous [Recovering/Resolving]
  - Pregnancy [Recovered/Resolved]
